FAERS Safety Report 10953313 (Version 1)
Quarter: 2015Q1

REPORT INFORMATION
  Report Type: Spontaneous
  Country: US (occurrence: US)
  Receive Date: 20150325
  Receipt Date: 20150325
  Transmission Date: 20150721
  Serious: No
  Sender: FDA-Public Use
  Company Number: US-PFIZER INC-2015102088

PATIENT
  Age: 63 Year
  Sex: Female
  Weight: 98 kg

DRUGS (1)
  1. PHENYTOIN. [Suspect]
     Active Substance: PHENYTOIN
     Indication: SEIZURE
     Dosage: 300 MG, 1X/DAY

REACTIONS (2)
  - Abdominal discomfort [Unknown]
  - Product taste abnormal [Unknown]
